FAERS Safety Report 16790831 (Version 1)
Quarter: 2019Q3

REPORT INFORMATION
  Report Type: Spontaneous
  Country: US (occurrence: US)
  Receive Date: 20190910
  Receipt Date: 20190910
  Transmission Date: 20191005
  Serious: Yes (Hospitalization)
  Sender: FDA-Public Use
  Company Number: US-BIOCODEX SA-201901102

PATIENT
  Age: 8 Year
  Sex: Female

DRUGS (2)
  1. DIACOMIT [Suspect]
     Active Substance: STIRIPENTOL
     Indication: PRODUCT USED FOR UNKNOWN INDICATION
     Dosage: 1000 MG, QD
     Route: 065
     Dates: start: 20190507
  2. DIACOMIT [Suspect]
     Active Substance: STIRIPENTOL
     Indication: PRODUCT USED FOR UNKNOWN INDICATION
     Dosage: 500 MG, QD
     Dates: start: 20190507

REACTIONS (1)
  - Seizure [Unknown]

NARRATIVE: CASE EVENT DATE: 20190826
